FAERS Safety Report 4834214-3 (Version None)
Quarter: 2005Q4

REPORT INFORMATION
  Report Type: 
  Country: None (occurrence: None)
  Receive Date: 20051122
  Receipt Date: 20051109
  Transmission Date: 20060501
  Serious: Yes (Hospitalization)
  Sender: FDA-Public Use
  Company Number: 2005AP05811

PATIENT
  Age: 20022 Day
  Sex: Female

DRUGS (3)
  1. ESOMEPRAZOLE MAGNESIUM TRIHYDRATE [Suspect]
  2. CITALOPRAM HYDROBROMIDE [Suspect]
     Indication: DEPRESSION
     Route: 048
     Dates: start: 20030515
  3. ALENDRONATE SODIUM [Suspect]
     Indication: BONE DISORDER
     Route: 048

REACTIONS (2)
  - EOSINOPHILIA [None]
  - NEPHRITIS INTERSTITIAL [None]
